FAERS Safety Report 18144803 (Version 1)
Quarter: 2020Q3

REPORT INFORMATION
  Report Type: Spontaneous
  Country: US (occurrence: US)
  Receive Date: 20200813
  Receipt Date: 20200813
  Transmission Date: 20201103
  Serious: No
  Sender: FDA-Public Use
  Company Number: None

PATIENT
  Age: 30 Year
  Sex: Female
  Weight: 71.55 kg

DRUGS (2)
  1. INVEGA [Suspect]
     Active Substance: PALIPERIDONE
     Indication: MENTAL DISORDER
     Dosage: ?          OTHER FREQUENCY:ONCE A MONTH;?
     Route: 030
     Dates: start: 20100612, end: 20100812
  2. TOPOMAX GENERIC [Concomitant]

REACTIONS (7)
  - Lethargy [None]
  - Abnormal behaviour [None]
  - Constipation [None]
  - Amenorrhoea [None]
  - Asthenia [None]
  - Memory impairment [None]
  - Near death experience [None]

NARRATIVE: CASE EVENT DATE: 20130612
